FAERS Safety Report 10190424 (Version 1)
Quarter: 2014Q2

REPORT INFORMATION
  Report Type: Spontaneous
  Country: US (occurrence: US)
  Receive Date: 20140522
  Receipt Date: 20140522
  Transmission Date: 20141212
  Serious: No
  Sender: FDA-Public Use
  Company Number: US-009507513-1405USA006547

PATIENT
  Age: 36 Year
  Sex: Female
  Weight: 61.22 kg

DRUGS (1)
  1. IMPLANON [Suspect]
     Indication: CONTRACEPTION
     Dosage: 1 ROD/3YEARS
     Route: 059
     Dates: start: 20100525

REACTIONS (5)
  - Cyst [Unknown]
  - Breast tenderness [Unknown]
  - Mood swings [Unknown]
  - Fatigue [Unknown]
  - Incorrect drug administration duration [Unknown]
